FAERS Safety Report 4407604-0 (Version None)
Quarter: 2004Q3

REPORT INFORMATION
  Report Type: 
  Country: None (occurrence: None)
  Receive Date: 20040721
  Receipt Date: 20040712
  Transmission Date: 20050211
  Serious: No
  Sender: FDA-Public Use
  Company Number: RS004593-AUS

PATIENT
  Sex: Female

DRUGS (2)
  1. RABEPRAZOLE SODIUM [Suspect]
     Dosage: ORAL; ABOUT 2 MONTHS AGO
     Route: 048
  2. NEXIUM [Concomitant]

REACTIONS (1)
  - RENAL FAILURE [None]
